FAERS Safety Report 8212821-8 (Version None)
Quarter: 2012Q1

REPORT INFORMATION
  Report Type: 
  Country: None (occurrence: None)
  Receive Date: 20120315
  Receipt Date: 20120312
  Transmission Date: 20120608
  Serious: Yes (Death, Hospitalization)
  Sender: FDA-Public Use
  Company Number: PHHY2012ES011634

PATIENT
  Age: 73 Year
  Sex: Female

DRUGS (8)
  1. CALCIUM W/COLECALCIFEROL [Concomitant]
     Indication: CHEST PAIN
     Dosage: 1250 MG/ 400 U PER 24 HOURS
  2. ROSUVASTATIN [Interacting]
     Indication: HYPERTRIGLYCERIDAEMIA
  3. LEVOTHYROXINE SODIUM [Concomitant]
     Indication: CHEST PAIN
     Dosage: 75 UG, QD
  4. FENOFIBRATE [Interacting]
     Indication: HYPERCHOLESTEROLAEMIA
  5. ROSUVASTATIN [Interacting]
     Indication: HYPERCHOLESTEROLAEMIA
     Dosage: 20 MG, QD
  6. ACENOCOUMAROL [Concomitant]
     Indication: CHEST PAIN
  7. FENOFIBRATE [Interacting]
     Indication: HYPERTRIGLYCERIDAEMIA
     Dosage: 160 MG, QD
  8. AMIODARONE HYDROCHLORIDE [Suspect]
     Dosage: 200 MG, QD

REACTIONS (10)
  - BLOOD CREATINE PHOSPHOKINASE INCREASED [None]
  - BLOOD LACTATE DEHYDROGENASE INCREASED [None]
  - ALANINE AMINOTRANSFERASE INCREASED [None]
  - ASPARTATE AMINOTRANSFERASE INCREASED [None]
  - BLOOD CREATININE INCREASED [None]
  - HEPATIC FAILURE [None]
  - HEPATIC ENZYME INCREASED [None]
  - BLOOD UREA INCREASED [None]
  - RHABDOMYOLYSIS [None]
  - DRUG INTERACTION [None]
